FAERS Safety Report 14037297 (Version 1)
Quarter: 2017Q4

REPORT INFORMATION
  Report Type: Report from Study
  Country: US (occurrence: US)
  Receive Date: 20171004
  Receipt Date: 20171004
  Transmission Date: 20180321
  Serious: Yes (Other)
  Sender: FDA-Public Use
  Company Number: US-ASTRAZENECA-2017SE98162

PATIENT
  Age: 1008 Month
  Sex: Female

DRUGS (2)
  1. TAGRISSO [Suspect]
     Active Substance: OSIMERTINIB
     Indication: NON-SMALL CELL LUNG CANCER
     Route: 048
     Dates: start: 20170614, end: 20170711
  2. NAVITOCLAX [Suspect]
     Active Substance: NAVITOCLAX
     Indication: NON-SMALL CELL LUNG CANCER
     Route: 048
     Dates: start: 20170614, end: 20170711

REACTIONS (3)
  - Fatigue [Unknown]
  - Muscular weakness [Unknown]
  - Lymphocyte count decreased [Unknown]

NARRATIVE: CASE EVENT DATE: 20170712
